FAERS Safety Report 13530322 (Version 1)
Quarter: 2017Q2

REPORT INFORMATION
  Report Type: Spontaneous
  Country: BR (occurrence: BR)
  Receive Date: 20170509
  Receipt Date: 20170509
  Transmission Date: 20170830
  Serious: Yes (Hospitalization)
  Sender: FDA-Public Use
  Company Number: BR-ASTRAZENECA-2017SE48524

PATIENT
  Sex: Female

DRUGS (1)
  1. BUDECORT AQUA [Suspect]
     Active Substance: BUDESONIDE
     Dosage: 2 SPRAYS/THREE TIMES A DAY
     Route: 045

REACTIONS (3)
  - Pneumonia [Unknown]
  - Immunodeficiency [Unknown]
  - Off label use [Unknown]
